FAERS Safety Report 14141354 (Version 2)
Quarter: 2017Q4

REPORT INFORMATION
  Report Type: Spontaneous
  Country: CH (occurrence: CH)
  Receive Date: 20171030
  Receipt Date: 20171108
  Transmission Date: 20180321
  Serious: Yes (Hospitalization)
  Sender: FDA-Public Use
  Company Number: CH-PFIZER INC-2017459666

PATIENT
  Age: 33 Year
  Sex: Female

DRUGS (2)
  1. MOMENT [Suspect]
     Active Substance: IBUPROFEN
     Dosage: 2-3 TABLETS TAKEN PER DAY
     Route: 048
     Dates: start: 201610, end: 20171005
  2. LYRICA [Suspect]
     Active Substance: PREGABALIN
     Dosage: 25 MG, 1X/DAY, INTAKE OF ONE SINGLE TABLET
     Route: 048
     Dates: start: 20171004, end: 20171005

REACTIONS (3)
  - Headache [Not Recovered/Not Resolved]
  - Drug abuse [Not Recovered/Not Resolved]
  - Presyncope [Recovered/Resolved]

NARRATIVE: CASE EVENT DATE: 2016
